FAERS Safety Report 11278067 (Version 2)
Quarter: 2015Q3

REPORT INFORMATION
  Report Type: Spontaneous
  Country: JP (occurrence: JP)
  Receive Date: 20150717
  Receipt Date: 20150904
  Transmission Date: 20151125
  Serious: Yes (Other)
  Sender: FDA-Public Use
  Company Number: JP-BEH-2015052415

PATIENT
  Age: 12 Year
  Sex: Female

DRUGS (5)
  1. ACYCLOVIR. [Suspect]
     Active Substance: ACYCLOVIR
     Indication: VARICELLA ZOSTER VIRUS INFECTION
     Route: 042
  2. MYCOPHENOLATE MOFETIL. [Concomitant]
     Active Substance: MYCOPHENOLATE MOFETIL
  3. VENILON [Suspect]
     Active Substance: HUMAN IMMUNOGLOBULIN G
     Indication: VARICELLA ZOSTER VIRUS INFECTION
     Dosage: 5 G/DAY
     Route: 042
  4. TACROLIMUS. [Concomitant]
     Active Substance: TACROLIMUS
  5. METHYLPREDNISOLONE. [Concomitant]
     Active Substance: METHYLPREDNISOLONE

REACTIONS (2)
  - Drug ineffective [Unknown]
  - Varicella zoster virus infection [Recovered/Resolved]
